FAERS Safety Report 6007317-8 (Version None)
Quarter: 2008Q4

REPORT INFORMATION
  Report Type: 
  Country: None (occurrence: None)
  Receive Date: 20081217
  Receipt Date: 20080306
  Transmission Date: 20090506
  Serious: No
  Sender: FDA-Public Use
  Company Number: US-ASTRAZENECA-2008UW04597

PATIENT
  Sex: Female
  Weight: 61.2 kg

DRUGS (5)
  1. CRESTOR [Suspect]
     Indication: BLOOD CHOLESTEROL INCREASED
     Route: 048
  2. CRESTOR [Suspect]
     Route: 048
  3. ZETIA [Concomitant]
  4. NIACIN [Concomitant]
  5. COENZYME Q10 [Concomitant]

REACTIONS (4)
  - ASTHENIA [None]
  - ILL-DEFINED DISORDER [None]
  - MUSCLE FATIGUE [None]
  - MUSCULAR WEAKNESS [None]
